FAERS Safety Report 6626261-6 (Version None)
Quarter: 2010Q1

REPORT INFORMATION
  Report Type: 
  Country: None (occurrence: None)
  Receive Date: 20100309
  Receipt Date: 20100309
  Transmission Date: 20100710
  Serious: No
  Sender: FDA-Public Use
  Company Number: None

PATIENT
  Age: 56 Year
  Sex: Female
  Weight: 79.3795 kg

DRUGS (6)
  1. ADVAIR DISKUS 250/50 [Suspect]
     Indication: ASTHMA
     Dosage: 1 PUFF MORNING + EVENING INHAL
     Route: 055
  2. ADVAIR DISKUS 250/50 [Suspect]
     Indication: CHRONIC OBSTRUCTIVE PULMONARY DISEASE
     Dosage: 1 PUFF MORNING + EVENING INHAL
     Route: 055
  3. TIMILOL DROPS [Concomitant]
  4. LUMIGAN DROPS [Concomitant]
  5. ACCUPRIL [Concomitant]
  6. MICROZIDE [Concomitant]

REACTIONS (4)
  - BLINDNESS UNILATERAL [None]
  - BLOOD PRESSURE INCREASED [None]
  - GLAUCOMA [None]
  - OPTIC ISCHAEMIC NEUROPATHY [None]
